FAERS Safety Report 23628941 (Version 1)
Quarter: 2024Q1

REPORT INFORMATION
  Report Type: Spontaneous
  Country: IT (occurrence: IT)
  Receive Date: 20240313
  Receipt Date: 20240313
  Transmission Date: 20240410
  Serious: Yes (Other)
  Sender: FDA-Public Use
  Company Number: IT-002147023-NVSC2023IT147472

PATIENT
  Age: 13 Year
  Sex: Female

DRUGS (1)
  1. FINGOLIMOD [Suspect]
     Active Substance: FINGOLIMOD
     Indication: Clinically isolated syndrome
     Dosage: 0.5 MILLIGRAM, QD (0.5 MG, QD)
     Route: 048

REACTIONS (2)
  - Clinically isolated syndrome [Unknown]
  - Disease recurrence [Unknown]
